FAERS Safety Report 5310028-5 (Version None)
Quarter: 2007Q2

REPORT INFORMATION
  Report Type: 
  Country: None (occurrence: None)
  Receive Date: 20070427
  Receipt Date: 20070424
  Transmission Date: 20071010
  Serious: Yes (Hospitalization)
  Sender: FDA-Public Use
  Company Number: US-GLAXOSMITHKLINE-A0648524A

PATIENT
  Age: 78 Year
  Sex: Male

DRUGS (4)
  1. ADVAIR DISKUS 100/50 [Suspect]
     Indication: CHRONIC OBSTRUCTIVE PULMONARY DISEASE
     Route: 055
     Dates: start: 20051001
  2. LEVOTHROID [Concomitant]
  3. M.V.I. [Concomitant]
  4. ASPIRIN [Concomitant]

REACTIONS (4)
  - CARDIAC PACEMAKER INSERTION [None]
  - ELECTROCARDIOGRAM ABNORMAL [None]
  - PNEUMONIA [None]
  - SENSORY DISTURBANCE [None]
